FAERS Safety Report 9357734 (Version 2)
Quarter: 2013Q3

REPORT INFORMATION
  Report Type: Spontaneous
  Country: DE (occurrence: DE)
  Receive Date: 20130620
  Receipt Date: 20130702
  Transmission Date: 20140515
  Serious: Yes (Other)
  Sender: FDA-Public Use
  Company Number: DE-PFIZER INC-2013180226

PATIENT
  Age: 78 Year
  Sex: Male
  Weight: 84 kg

DRUGS (11)
  1. IBUPROFEN [Suspect]
     Indication: NEURALGIA
     Dosage: 1 DF, 1X/DAY (800 UNK)
     Dates: start: 2007, end: 2013
  2. CO-DIOVAN [Suspect]
     Indication: HYPERTENSION
     Dosage: 1 DF, 1X/DAY (160/12.5 UNK)
     Dates: start: 2003, end: 2013
  3. UROXATRAL [Suspect]
     Indication: PROSTATIC ADENOMA
     Dosage: 10 MG, 1X/DAY
     Dates: start: 2003, end: 2013
  4. ALLOPURINOL [Suspect]
     Dosage: 1 DF, 1X/DAY (100 UNK)
     Dates: start: 2003, end: 2012
  5. ATENOLOL [Concomitant]
     Indication: HYPERTENSION
     Dosage: 1 DF, 1X/DAY (50 UNK)
     Dates: start: 2003, end: 2013
  6. METFORMIN [Concomitant]
     Indication: TYPE 2 DIABETES MELLITUS
     Dosage: 1 DF, 1X/DAY (1000 UNK)
     Dates: start: 2003, end: 2013
  7. JANUMET [Concomitant]
     Indication: TYPE 2 DIABETES MELLITUS
     Dosage: 1 DF, 1X/DAY (50/1000 UNK)
     Dates: start: 2003, end: 2013
  8. PALEXIA RETARD [Concomitant]
     Indication: NEURALGIA
     Dosage: 1 DF, 1X/DAY (50 UNK)
     Dates: start: 2009, end: 2012
  9. DOXYCYCLINE [Concomitant]
     Indication: INFECTION
     Dosage: 1 DF, 1X/DAY (100/200 UNK)
     Dates: start: 2011, end: 2012
  10. ARCOXIA [Concomitant]
     Indication: NEURALGIA
     Dosage: 1 DF, DAILY
     Dates: start: 2011, end: 2011
  11. TRAMADOL HYDROCHLORIDE [Concomitant]
     Indication: PROCEDURAL PAIN
     Dosage: 1 DF, EVERY DAY
     Dates: start: 2009, end: 2011

REACTIONS (3)
  - Anaemia [Unknown]
  - Pancytopenia [Unknown]
  - Renal impairment [Unknown]
